FAERS Safety Report 13454604 (Version 1)
Quarter: 2017Q2

REPORT INFORMATION
  Report Type: Spontaneous
  Country: US (occurrence: US)
  Receive Date: 20170418
  Receipt Date: 20170418
  Transmission Date: 20170830
  Serious: No
  Sender: FDA-Public Use
  Company Number: US-ALLERGAN-1701337US

PATIENT
  Age: 64 Year
  Sex: Female

DRUGS (1)
  1. LATISSE [Suspect]
     Active Substance: BIMATOPROST
     Indication: GROWTH OF EYELASHES
     Dosage: UNK UNK, QHS
     Route: 061
     Dates: start: 20161224, end: 20161225

REACTIONS (6)
  - Ocular hyperaemia [Recovered/Resolved]
  - Ocular discomfort [Unknown]
  - Eye irritation [Recovered/Resolved]
  - Eyelid pain [Unknown]
  - Dry eye [Recovered/Resolved]
  - Erythema of eyelid [Unknown]

NARRATIVE: CASE EVENT DATE: 20161225
